FAERS Safety Report 12614834 (Version 2)
Quarter: 2019Q4

REPORT INFORMATION
  Report Type: Report from Study
  Country: US (occurrence: US)
  Receive Date: 20160802
  Receipt Date: 20191202
  Transmission Date: 20200122
  Serious: Yes (Other)
  Sender: FDA-Public Use
  Company Number: US-SA-2016SA137913

PATIENT
  Sex: Male

DRUGS (2)
  1. ALGLUCOSIDASE ALFA [Suspect]
     Active Substance: ALGLUCOSIDASE ALFA
     Indication: GLYCOGEN STORAGE DISEASE TYPE II
     Dosage: 750, Q1
     Route: 041
     Dates: start: 20170629, end: 201909
  2. ALGLUCOSIDASE ALFA [Suspect]
     Active Substance: ALGLUCOSIDASE ALFA
     Dosage: 750, Q1
     Route: 041

REACTIONS (2)
  - Malaise [Recovered/Resolved]
  - Facial paralysis [Unknown]

NARRATIVE: CASE EVENT DATE: 2019
